FAERS Safety Report 8097440-9 (Version None)
Quarter: 2012Q1

REPORT INFORMATION
  Report Type: 
  Country: None (occurrence: None)
  Receive Date: 20120128
  Receipt Date: 20110801
  Transmission Date: 20120608
  Serious: No
  Sender: FDA-Public Use
  Company Number: US-ABBOTT-11P-163-0734570-00

PATIENT
  Sex: Female
  Weight: 74.91 kg

DRUGS (14)
  1. NEXIUM [Concomitant]
     Indication: ULCER
  2. GENERIC ASACOL [Concomitant]
     Indication: CROHN'S DISEASE
  3. HUMIRA [Suspect]
  4. LISINOPRIL [Concomitant]
     Indication: HYPERTENSION
     Route: 048
  5. LEXAPRO [Concomitant]
     Indication: ANXIETY
  6. ALLEGRA [Concomitant]
     Indication: PRODUCT USED FOR UNKNOWN INDICATION
  7. TRAMADOL HCL [Concomitant]
     Indication: PAIN
     Dosage: PRN
  8. PREDNISONE TAB [Concomitant]
     Indication: CROHN'S DISEASE
  9. HUMIRA [Suspect]
     Indication: CROHN'S DISEASE
     Dosage: 160MG
     Route: 058
     Dates: start: 20110509, end: 20110509
  10. HUMIRA [Suspect]
     Route: 058
     Dates: start: 20110509
  11. HUMIRA [Suspect]
     Dosage: SYRINGE: 1 IN 2 WEEKS
     Route: 058
     Dates: start: 20110601
  12. LEXAPRO [Concomitant]
     Indication: DEPRESSION
     Route: 048
  13. HYDROCHLOROTHIAZIDE [Concomitant]
     Indication: HYPERTENSION
     Route: 048
  14. MULTI-VITAMINS [Concomitant]
     Indication: VITAMIN SUPPLEMENTATION

REACTIONS (8)
  - ABDOMINAL PAIN LOWER [None]
  - DECREASED APPETITE [None]
  - INFLUENZA [None]
  - VOMITING [None]
  - HEADACHE [None]
  - DIARRHOEA [None]
  - INJECTION SITE PAIN [None]
  - MALAISE [None]
